FAERS Safety Report 8432033-2 (Version None)
Quarter: 2012Q2

REPORT INFORMATION
  Report Type: 
  Country: None (occurrence: None)
  Receive Date: 20120606
  Receipt Date: 20120530
  Transmission Date: 20120825
  Serious: Yes (Other)
  Sender: FDA-Public Use
  Company Number: AUR-APL-2012-02335

PATIENT
  Age: 57 Year
  Sex: Male

DRUGS (7)
  1. ZOPICLONE (ZOPICLONE) [Concomitant]
  2. NITRAZEPAM [Concomitant]
  3. CITALOPRAM HYDROBROMIDE [Concomitant]
  4. SUMATRIPTAN [Concomitant]
  5. PAROXETINE [Suspect]
     Indication: DEPRESSION
     Dosage: (20 MG), ORAL
     Route: 048
     Dates: start: 20120318, end: 20120401
  6. PAROXETINE [Suspect]
     Indication: ANXIETY
     Dosage: (20 MG), ORAL
     Route: 048
     Dates: start: 20120318, end: 20120401
  7. ZOLPIDEM [Concomitant]

REACTIONS (5)
  - NEGATIVE THOUGHTS [None]
  - HYPERHIDROSIS [None]
  - CONDITION AGGRAVATED [None]
  - DRUG WITHDRAWAL SYNDROME [None]
  - SUICIDAL IDEATION [None]
